FAERS Safety Report 10211078 (Version 3)
Quarter: 2014Q2

REPORT INFORMATION
  Report Type: Spontaneous
  Country: US (occurrence: US)
  Receive Date: 20140602
  Receipt Date: 20140616
  Transmission Date: 20141212
  Serious: Yes (Other)
  Sender: FDA-Public Use
  Company Number: US-PFIZER INC-2014076437

PATIENT
  Age: 68 Year
  Sex: Female

DRUGS (4)
  1. LIPITOR [Suspect]
     Indication: BLOOD CHOLESTEROL INCREASED
     Dosage: 10 MG, 1X/DAY
     Route: 048
     Dates: start: 20010828, end: 201005
  2. BABY ASPIRIN [Concomitant]
     Indication: CARDIAC DISORDER
     Dosage: 1 DF, 1X/DAY
     Dates: start: 2006
  3. FISH OIL [Concomitant]
     Indication: CARDIAC DISORDER
     Dosage: 1200 MG, 1X/DAY
     Dates: start: 2006
  4. CALCIUM [Concomitant]
     Indication: BONE DISORDER
     Dosage: 600 MG, 1X/DAY
     Dates: start: 2006

REACTIONS (1)
  - Type 2 diabetes mellitus [Not Recovered/Not Resolved]
